FAERS Safety Report 6063874-7 (Version None)
Quarter: 2009Q1

REPORT INFORMATION
  Report Type: 
  Country: None (occurrence: None)
  Receive Date: 20090204
  Receipt Date: 20090127
  Transmission Date: 20090719
  Serious: Yes (Death)
  Sender: FDA-Public Use
  Company Number: US-AVENTIS-200820478GDDC

PATIENT
  Age: 77 Year
  Sex: Male
  Weight: 68 kg

DRUGS (22)
  1. AFLIBERCEPT [Suspect]
     Route: 042
     Dates: start: 20081013, end: 20081013
  2. DOCETAXEL [Suspect]
     Route: 042
     Dates: start: 20081013, end: 20081013
  3. PREDNISONE [Suspect]
     Route: 048
     Dates: start: 20080818, end: 20081013
  4. LUPRON [Concomitant]
     Dates: start: 19980609
  5. CASODEX [Concomitant]
     Dates: start: 19980609
  6. ARTHROTEC [Concomitant]
     Dates: start: 20060101
  7. LISINOPRIL [Concomitant]
     Dates: start: 20080201
  8. METOPROLOL SUCCINATE [Concomitant]
     Dates: start: 20080201
  9. HYDROCHLOROTHIAZIDE [Concomitant]
     Dates: start: 20080201
  10. ASPIRIN [Concomitant]
     Dates: start: 19930101
  11. CALCIUM WITH VITAMIN D             /01233101/ [Concomitant]
     Dates: start: 19980101
  12. IRON [Concomitant]
     Dates: start: 20080815
  13. FOLIC ACID [Concomitant]
     Dates: start: 20080815
  14. STARLIX [Concomitant]
     Dates: start: 20080828
  15. VITAMIN B-12 [Concomitant]
     Dates: start: 20080908
  16. QUESTRAN [Concomitant]
     Dates: start: 20080908
  17. INTESTINAL ADSORBENTS [Concomitant]
     Dates: start: 20080825
  18. ZOFRAN [Concomitant]
     Dates: start: 20080922
  19. MEGACE [Concomitant]
     Dates: start: 20080922
  20. DECADRON [Concomitant]
     Dates: start: 20080817
  21. PROTONIX [Concomitant]
     Dates: start: 20081002
  22. ATIVAN [Concomitant]
     Dates: start: 20081013

REACTIONS (1)
  - CEREBROVASCULAR ACCIDENT [None]
